FAERS Safety Report 5565469-8 (Version None)
Quarter: 2007Q4

REPORT INFORMATION
  Report Type: 
  Country: None (occurrence: None)
  Receive Date: 20071218
  Receipt Date: 20070613
  Transmission Date: 20080405
  Serious: No
  Sender: FDA-Public Use
  Company Number: US-BAUSCH-2007BL001963

PATIENT
  Sex: Female

DRUGS (1)
  1. NEOMYCIN AND POLYMXIN B SULFATES AND HYDROCORTISONE [Suspect]
     Route: 047
     Dates: start: 20070609, end: 20070609

REACTIONS (4)
  - EYE PRURITUS [None]
  - EYELID PAIN [None]
  - EYELID PTOSIS [None]
  - MEDICATION ERROR [None]
